FAERS Safety Report 9163912 (Version 1)
Quarter: 2013Q1

REPORT INFORMATION
  Report Type: Spontaneous
  Country: US (occurrence: US)
  Receive Date: 20130314
  Receipt Date: 20130314
  Transmission Date: 20140127
  Serious: No
  Sender: FDA-Public Use
  Company Number: US-ASTRAZENECA-2013SE08278

PATIENT
  Age: 72 Year
  Sex: Female
  Weight: 61.2 kg

DRUGS (14)
  1. SYMBICORT [Suspect]
     Indication: CHRONIC OBSTRUCTIVE PULMONARY DISEASE
     Dosage: 160 MCG 2 PUFFS, BID
     Route: 055
     Dates: start: 20130131
  2. SYMBICORT [Suspect]
     Indication: ASTHMA
     Dosage: 160 MCG 2 PUFFS, BID
     Route: 055
     Dates: start: 20130131
  3. SYMBICORT [Suspect]
     Indication: CHRONIC OBSTRUCTIVE PULMONARY DISEASE
     Dosage: 1 PUFF, BID
     Route: 055
  4. SYMBICORT [Suspect]
     Indication: ASTHMA
     Dosage: 1 PUFF, BID
     Route: 055
  5. PROAIR [Suspect]
     Indication: CHRONIC OBSTRUCTIVE PULMONARY DISEASE
     Dosage: 90 MCG 2 PUFFS QID  PRN
     Route: 055
     Dates: start: 2001
  6. PROAIR [Suspect]
     Indication: ASTHMA
     Dosage: 90 MCG 2 PUFFS QID  PRN
     Route: 055
     Dates: start: 2001
  7. PROAIR [Suspect]
     Indication: CHRONIC OBSTRUCTIVE PULMONARY DISEASE
     Dosage: 5 PUFFS DAILY
     Route: 055
  8. PROAIR [Suspect]
     Indication: ASTHMA
     Dosage: 5 PUFFS DAILY
     Route: 055
  9. SPIRIVA [Suspect]
     Dosage: DAILY
     Route: 055
  10. VITAMIN B SOMETHING [Concomitant]
  11. ALLEGRA OTC [Concomitant]
     Indication: SINUSITIS
  12. VICODIN [Concomitant]
     Indication: ARTHRITIS
  13. BENICAR [Concomitant]
     Indication: BLOOD PRESSURE INCREASED
  14. TRIAMCINOLONE ACETONIDE [Concomitant]
     Indication: SINUSITIS

REACTIONS (3)
  - Chest discomfort [Unknown]
  - Headache [Unknown]
  - Off label use [Unknown]
